FAERS Safety Report 9149268 (Version 1)
Quarter: 2013Q1

REPORT INFORMATION
  Report Type: Spontaneous
  Country: US (occurrence: US)
  Receive Date: 20130308
  Receipt Date: 20130308
  Transmission Date: 20140127
  Serious: No
  Sender: FDA-Public Use
  Company Number: US-PFIZER INC-2013078791

PATIENT
  Age: 53 Year
  Sex: Female
  Weight: 49.89 kg

DRUGS (3)
  1. GABAPENTIN [Suspect]
     Indication: NEURALGIA
     Dosage: 25MG DAILY AT NIGHT
     Dates: start: 20130220, end: 20130225
  2. GABAPENTIN [Suspect]
     Indication: FIBROMYALGIA
  3. EMSAM [Concomitant]
     Indication: PANIC ATTACK
     Dosage: 6 MG, 1X/DAY (EVERY 24 HOURS)
     Route: 062

REACTIONS (10)
  - Asthenia [Recovered/Resolved]
  - Dysstasia [Recovered/Resolved]
  - Aphonia [Recovered/Resolved]
  - Lymphadenopathy [Recovered/Resolved]
  - Nasal oedema [Recovered/Resolved]
  - Lip swelling [Recovered/Resolved]
  - Drug hypersensitivity [Unknown]
  - Oropharyngeal pain [Recovered/Resolved]
  - Laryngitis [Recovered/Resolved]
  - Cough [Recovered/Resolved]
